FAERS Safety Report 17956890 (Version 1)
Quarter: 2020Q2

REPORT INFORMATION
  Report Type: Spontaneous
  Country: US (occurrence: US)
  Receive Date: 20200629
  Receipt Date: 20200629
  Transmission Date: 20200714
  Serious: Yes (Other)
  Sender: FDA-Public Use
  Company Number: None

PATIENT
  Age: 84 Year
  Sex: Female

DRUGS (13)
  1. AZYLASTINE [Concomitant]
  2. EPINEPHRINE AUTO INJECTOR 0.3MG [Suspect]
     Active Substance: EPINEPHRINE
     Indication: ANAPHYLAXIS PROPHYLAXIS
     Dosage: ?          QUANTITY:1 INJECTION(S);?
     Route: 030
  3. PEPCID [Concomitant]
     Active Substance: FAMOTIDINE
  4. VITAMIN D3 [Concomitant]
     Active Substance: CHOLECALCIFEROL
  5. OXYBUTYNIN. [Concomitant]
     Active Substance: OXYBUTYNIN CHLORIDE
  6. SODIUM BICARB [Concomitant]
     Active Substance: SODIUM BICARBONATE
  7. BAYER [Concomitant]
     Active Substance: ASPIRIN
  8. TELMISARTAN. [Concomitant]
     Active Substance: TELMISARTAN
  9. CALCIUM [Concomitant]
     Active Substance: CALCIUM
  10. PREDNISONE. [Concomitant]
     Active Substance: PREDNISONE
  11. ROSUVASTATIN. [Concomitant]
     Active Substance: ROSUVASTATIN
  12. NASONEX [Concomitant]
     Active Substance: MOMETASONE FUROATE
  13. LASIX [Concomitant]
     Active Substance: FUROSEMIDE

REACTIONS (3)
  - Blood pressure measurement [None]
  - Tremor [None]
  - Injury [None]

NARRATIVE: CASE EVENT DATE: 20200521
